FAERS Safety Report 6710403-8 (Version None)
Quarter: 2010Q2

REPORT INFORMATION
  Report Type: 
  Country: None (occurrence: None)
  Receive Date: 20100430
  Receipt Date: 20100421
  Transmission Date: 20101027
  Serious: Yes (Other)
  Sender: FDA-Public Use
  Company Number: 2010AL002412

PATIENT
  Age: 62 Year
  Sex: Male

DRUGS (6)
  1. ACYCLOVIR [Suspect]
     Dosage: IV
     Route: 042
     Dates: start: 20100320
  2. CEFTRIAXONE [Concomitant]
  3. NAPROXEN [Concomitant]
  4. INDAPAMIDE [Concomitant]
  5. AMLODIPINE [Concomitant]
  6. SIMVASTATIN [Concomitant]

REACTIONS (1)
  - RENAL FAILURE ACUTE [None]
